FAERS Safety Report 5302994-9 (Version None)
Quarter: 2007Q2

REPORT INFORMATION
  Report Type: 
  Country: None (occurrence: None)
  Receive Date: 20070417
  Receipt Date: 20070417
  Transmission Date: 20071010
  Serious: Yes (Other)
  Sender: FDA-Public Use
  Company Number: None

PATIENT
  Sex: Male
  Weight: 66.6788 kg

DRUGS (1)
  1. ISOVUE-370 [Suspect]
     Indication: ARTERIOGRAM CORONARY
     Dosage: INTRACORONA
     Route: 022
     Dates: start: 20070213, end: 20070213

REACTIONS (5)
  - BRADYCARDIA [None]
  - CHEST PAIN [None]
  - ELECTROCARDIOGRAM ST SEGMENT ELEVATION [None]
  - HYPOTENSION [None]
  - PROCEDURAL COMPLICATION [None]
